FAERS Safety Report 15249069 (Version 1)
Quarter: 2018Q3

REPORT INFORMATION
  Report Type: Spontaneous
  Country: MX (occurrence: MX)
  Receive Date: 20180807
  Receipt Date: 20180807
  Transmission Date: 20181010
  Serious: Yes (Other)
  Sender: FDA-Public Use
  Company Number: MX-NOVAST LABORATORIES, LTD-MX-2018NOV000284

PATIENT
  Age: 12 Year
  Sex: Female

DRUGS (6)
  1. DABIGATRAN ETEXILATE [Suspect]
     Active Substance: DABIGATRAN ETEXILATE
     Indication: ANTIPHOSPHOLIPID SYNDROME
  2. CARISOPRODOL\ASPIRIN [Suspect]
     Active Substance: ASPIRIN\CARISOPRODOL
     Indication: SUBCLAVIAN VEIN THROMBOSIS
     Dosage: UNK
  3. MYCOPHENOLIC ACID. [Suspect]
     Active Substance: MYCOPHENOLIC ACID
     Indication: ANTIPHOSPHOLIPID SYNDROME
     Dosage: 1 G/24 HOUR
  4. CARISOPRODOL\ASPIRIN [Suspect]
     Active Substance: ASPIRIN\CARISOPRODOL
     Indication: ANTIPHOSPHOLIPID SYNDROME
  5. ENOXAPARIN SODIUM. [Concomitant]
     Active Substance: ENOXAPARIN SODIUM
     Indication: SUBCLAVIAN VEIN THROMBOSIS
     Dosage: UNK
  6. DABIGATRAN ETEXILATE [Suspect]
     Active Substance: DABIGATRAN ETEXILATE
     Indication: SUBCLAVIAN VEIN THROMBOSIS
     Dosage: UNK

REACTIONS (2)
  - Pancreatitis [Unknown]
  - Gastrointestinal haemorrhage [Recovered/Resolved]
